FAERS Safety Report 18755638 (Version 2)
Quarter: 2021Q1

REPORT INFORMATION
  Report Type: Spontaneous
  Country: US (occurrence: US)
  Receive Date: 20210119
  Receipt Date: 20210120
  Transmission Date: 20210419
  Serious: Yes (Other)
  Sender: FDA-Public Use
  Company Number: US-SA-2021SA012335

PATIENT
  Age: 38 Year
  Sex: Male

DRUGS (3)
  1. ZANTAC [Suspect]
     Active Substance: RANITIDINE HYDROCHLORIDE
     Indication: DYSPEPSIA
  2. ZANTAC [Suspect]
     Active Substance: RANITIDINE HYDROCHLORIDE
     Indication: DYSPEPSIA
     Dosage: UNK, QW
     Route: 065
     Dates: start: 201401, end: 201811
  3. ZANTAC [Suspect]
     Active Substance: RANITIDINE HYDROCHLORIDE
     Indication: GASTRIC ULCER

REACTIONS (2)
  - Leiomyosarcoma [Unknown]
  - Oesophageal carcinoma [Unknown]

NARRATIVE: CASE EVENT DATE: 20170401
